FAERS Safety Report 5888909-3 (Version None)
Quarter: 2008Q3

REPORT INFORMATION
  Report Type: 
  Country: None (occurrence: None)
  Receive Date: 20080919
  Receipt Date: 20080915
  Transmission Date: 20090109
  Serious: Yes (Life-Threatening, Hospitalization, Other)
  Sender: FDA-Public Use
  Company Number: PHHY2008NO21507

PATIENT
  Sex: Female

DRUGS (4)
  1. VOLTAREN [Suspect]
     Indication: PAIN IN EXTREMITY
     Dosage: 50 MG, TID
     Route: 048
     Dates: start: 20080801
  2. ALBYL-E [Suspect]
     Indication: PROPHYLAXIS
     Dosage: 75MG PER DAY
     Route: 048
     Dates: end: 20080901
  3. COZAAR [Concomitant]
     Dosage: UNK
     Route: 048
     Dates: end: 20080801
  4. AMLODIPINE [Concomitant]
     Indication: HYPERTENSION
     Route: 048

REACTIONS (9)
  - ATRIAL FIBRILLATION [None]
  - BLOOD UREA INCREASED [None]
  - DUODENAL ULCER [None]
  - GASTRIC ULCER [None]
  - GASTROINTESTINAL ULCER [None]
  - HAEMATEMESIS [None]
  - HELICOBACTER INFECTION [None]
  - HYPONATRAEMIA [None]
  - NAUSEA [None]
